FAERS Safety Report 9201368 (Version 3)
Quarter: 2013Q2

REPORT INFORMATION
  Report Type: Spontaneous
  Country: US (occurrence: US)
  Receive Date: 20130401
  Receipt Date: 20130424
  Transmission Date: 20140414
  Serious: Yes (Other)
  Sender: FDA-Public Use
  Company Number: US-JNJFOC-20130210380

PATIENT
  Age: 44 Year
  Sex: Male
  Weight: 65.77 kg

DRUGS (2)
  1. VISINE A.C. [Suspect]
     Indication: ASTHENOPIA
     Route: 047
     Dates: start: 20130214, end: 20130214
  2. VISINE A.C. [Suspect]
     Indication: ASTHENOPIA
     Dosage: TWO DROPS IN RIGHT EYE
     Route: 047

REACTIONS (6)
  - Iritis [Recovering/Resolving]
  - Foreign body in eye [Recovered/Resolved]
  - Condition aggravated [Recovering/Resolving]
  - Eye irritation [Recovering/Resolving]
  - Vision blurred [Recovering/Resolving]
  - Expired drug administered [Unknown]
